FAERS Safety Report 14555161 (Version 1)
Quarter: 2018Q1

REPORT INFORMATION
  Report Type: Spontaneous
  Country: US (occurrence: US)
  Receive Date: 20180219
  Receipt Date: 20180219
  Transmission Date: 20180509
  Serious: Yes (Other)
  Sender: FDA-Public Use
  Company Number: None

PATIENT
  Age: 65 Year
  Sex: Male
  Weight: 82.62 kg

DRUGS (6)
  1. OXYCODONE ER [Concomitant]
     Active Substance: OXYCODONE
  2. CALCIUM [Concomitant]
     Active Substance: CALCIUM
  3. PREDNISONE. [Concomitant]
     Active Substance: PREDNISONE
  4. XGEVA [Concomitant]
     Active Substance: DENOSUMAB
  5. ZYTIGA [Suspect]
     Active Substance: ABIRATERONE ACETATE
     Indication: PROSTATE CANCER
     Route: 048
     Dates: start: 20171205, end: 20180216
  6. OXYCONTIN [Concomitant]
     Active Substance: OXYCODONE HYDROCHLORIDE

REACTIONS (2)
  - Disease progression [None]
  - Therapy change [None]

NARRATIVE: CASE EVENT DATE: 20180215
